FAERS Safety Report 5068650-X (Version None)
Quarter: 2006Q3

REPORT INFORMATION
  Report Type: 
  Country: None (occurrence: None)
  Receive Date: 20060802
  Receipt Date: 20060125
  Transmission Date: 20061208
  Serious: No
  Sender: FDA-Public Use
  Company Number: US-BRISTOL-MYERS SQUIBB COMPANY-13259601

PATIENT
  Age: 38 Year
  Sex: Female
  Weight: 82 kg

DRUGS (6)
  1. WARFARIN SODIUM [Suspect]
     Indication: HEART VALVE REPLACEMENT
     Route: 048
  2. PREDNISONE [Interacting]
     Indication: URTICARIA
     Route: 048
     Dates: start: 20051101, end: 20051201
  3. SYNTHROID [Concomitant]
  4. IRON [Concomitant]
  5. LEVORA 0.15/30-21 [Concomitant]
  6. LEVORA 0.15/30-21 [Concomitant]
     Dosage: LEVONORGESTREL 0.15MG, ETHINYL ESTRADIOL 0.03MG

REACTIONS (3)
  - CONSTIPATION [None]
  - DRUG INTERACTION [None]
  - INTERNATIONAL NORMALISED RATIO INCREASED [None]
